FAERS Safety Report 10285654 (Version 5)
Quarter: 2014Q4

REPORT INFORMATION
  Report Type: Spontaneous
  Country: DE (occurrence: DE)
  Receive Date: 20140709
  Receipt Date: 20141111
  Transmission Date: 20150528
  Serious: Yes (Other)
  Sender: FDA-Public Use
  Company Number: DE-AMGEN-DEUSP2014050127

PATIENT
  Sex: Female

DRUGS (2)
  1. PROLIA [Suspect]
     Active Substance: DENOSUMAB
     Indication: OSTEOPOROSIS
     Dosage: UNK
     Route: 065
     Dates: start: 20140109
  2. L THYROXINE [Concomitant]
     Active Substance: LEVOTHYROXINE SODIUM
     Dosage: 75 MG, QD
     Route: 048
     Dates: start: 2009

REACTIONS (4)
  - Intervertebral disc protrusion [Unknown]
  - Spinal cord disorder [Unknown]
  - Multiple sclerosis relapse [Recovering/Resolving]
  - Vertebral foraminal stenosis [Unknown]

NARRATIVE: CASE EVENT DATE: 20140117
